FAERS Safety Report 8593546-6 (Version None)
Quarter: 2012Q3

REPORT INFORMATION
  Report Type: 
  Country: None (occurrence: None)
  Receive Date: 20120814
  Receipt Date: 20120808
  Transmission Date: 20120928
  Serious: Yes (Life-Threatening)
  Sender: FDA-Public Use
  Company Number: US-BAYER-2012-081833

PATIENT
  Sex: Female

DRUGS (1)
  1. MIDOL MENSTRUAL COMPLETE CAPLETS [Suspect]
     Indication: PRODUCT USED FOR UNKNOWN INDICATION
     Dosage: 4 DF, UNK
     Route: 048
     Dates: start: 20120808, end: 20120808

REACTIONS (1)
  - LOSS OF CONSCIOUSNESS [None]
